FAERS Safety Report 4667870-3 (Version None)
Quarter: 2005Q2

REPORT INFORMATION
  Report Type: 
  Country: None (occurrence: None)
  Receive Date: 20050520
  Receipt Date: 20050520
  Transmission Date: 20051028
  Serious: Yes (Other)
  Sender: FDA-Public Use
  Company Number: None

PATIENT
  Sex: Female
  Weight: 74.3899 kg

DRUGS (2)
  1. XELODA [Suspect]
     Indication: BREAST CANCER METASTATIC
     Dosage: 825 MG/M2 PO BID
     Route: 048
     Dates: start: 20050404, end: 20050426
  2. NAVELBINE [Concomitant]

REACTIONS (4)
  - BRONCHOSPASM [None]
  - DIFFICULTY IN WALKING [None]
  - DRUG INTOLERANCE [None]
  - DYSPNOEA [None]
